FAERS Safety Report 14008096 (Version 1)
Quarter: 2017Q3

REPORT INFORMATION
  Report Type: Spontaneous
  Country: US (occurrence: None)
  Receive Date: 20170924
  Receipt Date: 20170924
  Transmission Date: 20171128
  Serious: No
  Sender: FDA-Public Use
  Company Number: None

PATIENT
  Age: 16 Year
  Sex: Female

DRUGS (1)
  1. OCTREOTIDE 200MCG/ML FRESENIUS KABI [Suspect]
     Active Substance: OCTREOTIDE
     Indication: PRODUCT USED FOR UNKNOWN INDICATION
     Route: 023
     Dates: start: 20170630

REACTIONS (1)
  - Weight increased [None]

NARRATIVE: CASE EVENT DATE: 20170801
